FAERS Safety Report 24735666 (Version 1)
Quarter: 2024Q4

REPORT INFORMATION
  Report Type: Spontaneous
  Country: JP (occurrence: JP)
  Receive Date: 20241216
  Receipt Date: 20241216
  Transmission Date: 20250114
  Serious: Yes (Hospitalization, Other)
  Sender: SANDOZ
  Company Number: JP-SANDOZ-SDZ2024JP102495

PATIENT
  Age: 75 Year
  Sex: Female

DRUGS (1)
  1. LEVOFLOXACIN [Suspect]
     Active Substance: LEVOFLOXACIN
     Indication: Product used for unknown indication
     Dosage: TAKEN ALL THREE DAYS^ WORTH OF LVFX TABLETS 500 MG AFTER SURGERY
     Route: 048

REACTIONS (3)
  - Status epilepticus [Recovering/Resolving]
  - Overdose [Unknown]
  - Incorrect dosage administered [Unknown]
